FAERS Safety Report 12593871 (Version 1)
Quarter: 2016Q3

REPORT INFORMATION
  Report Type: Spontaneous
  Country: US (occurrence: US)
  Receive Date: 20160726
  Receipt Date: 20160726
  Transmission Date: 20161109
  Serious: No
  Sender: FDA-Public Use
  Company Number: US-ABBVIE-16P-163-1683257-00

PATIENT
  Sex: Female
  Weight: 62.65 kg

DRUGS (1)
  1. SYNTHROID [Suspect]
     Active Substance: LEVOTHYROXINE SODIUM
     Indication: PRODUCT USED FOR UNKNOWN INDICATION
     Route: 048

REACTIONS (11)
  - Alopecia [Unknown]
  - Insomnia [Unknown]
  - Vision blurred [Unknown]
  - Drug ineffective [Unknown]
  - Dyspnoea [Unknown]
  - Weight increased [Unknown]
  - Fatigue [Unknown]
  - Headache [Unknown]
  - Tinnitus [Unknown]
  - Dermatitis psoriasiform [Unknown]
  - Visual impairment [Unknown]
